FAERS Safety Report 21815428 (Version 5)
Quarter: 2023Q2

REPORT INFORMATION
  Report Type: Spontaneous
  Country: US (occurrence: US)
  Receive Date: 20230104
  Receipt Date: 20230605
  Transmission Date: 20230721
  Serious: Yes (Other)
  Sender: FDA-Public Use
  Company Number: US-BRISTOL-MYERS SQUIBB COMPANY-2022-160719

PATIENT
  Age: 71 Year
  Sex: Female

DRUGS (5)
  1. REVLIMID [Suspect]
     Active Substance: LENALIDOMIDE
     Indication: Follicular lymphoma
     Dosage: 20 MG DAILY
     Route: 048
     Dates: start: 20221101
  2. REVLIMID [Suspect]
     Active Substance: LENALIDOMIDE
  3. RITUXAN [Concomitant]
     Active Substance: RITUXIMAB
     Indication: Product used for unknown indication
  4. SYMBICORT [Concomitant]
     Active Substance: BUDESONIDE\FORMOTEROL FUMARATE DIHYDRATE
     Indication: Product used for unknown indication
  5. FLONASE [Concomitant]
     Active Substance: FLUTICASONE PROPIONATE
     Indication: Product used for unknown indication

REACTIONS (7)
  - Immunoglobulins decreased [Unknown]
  - Faecaloma [Unknown]
  - Fatigue [Unknown]
  - Thyroiditis [Unknown]
  - Hormone level abnormal [Unknown]
  - Abscess oral [Unknown]
  - Diarrhoea [Unknown]
